FAERS Safety Report 16700426 (Version 1)
Quarter: 2019Q3

REPORT INFORMATION
  Report Type: Spontaneous
  Country: US (occurrence: US)
  Receive Date: 20190814
  Receipt Date: 20190814
  Transmission Date: 20191004
  Serious: No
  Sender: FDA-Public Use
  Company Number: US-TEVA-2019-US-1090927

PATIENT
  Sex: Female

DRUGS (3)
  1. TRAMADOL HYDROCHLORIDE TABLETS [Suspect]
     Active Substance: TRAMADOL HYDROCHLORIDE
     Indication: FIBROMYALGIA
     Route: 065
     Dates: start: 2012
  2. TRAMADOL HYDROCHLORIDE TABLETS [Suspect]
     Active Substance: TRAMADOL HYDROCHLORIDE
     Indication: PAIN
  3. TRAMADOL HYDROCHLORIDE TABLETS [Suspect]
     Active Substance: TRAMADOL HYDROCHLORIDE
     Indication: DEPRESSION

REACTIONS (2)
  - Feeling abnormal [Unknown]
  - Drug ineffective [Unknown]
